FAERS Safety Report 12790405 (Version 1)
Quarter: 2016Q3

REPORT INFORMATION
  Report Type: Report from Study
  Country: JP (occurrence: JP)
  Receive Date: 20160928
  Receipt Date: 20160928
  Transmission Date: 20161109
  Serious: Yes (Hospitalization)
  Sender: FDA-Public Use
  Company Number: JP-ROCHE-1835930

PATIENT
  Age: 64 Year
  Sex: Female
  Weight: 62 kg

DRUGS (4)
  1. FULVESTRANT [Suspect]
     Active Substance: FULVESTRANT
     Indication: BREAST CANCER
     Route: 030
     Dates: start: 20150526, end: 20151208
  2. PACLITAXEL. [Suspect]
     Active Substance: PACLITAXEL
     Indication: BREAST CANCER
     Dosage: AMOUNT OF 1 ONCE ADMINISTRATION: 65-90MG/M2?3 WEEKS ADMINISTRATION FOLLOWED BY 1 WEEK REST
     Route: 041
     Dates: start: 20141202, end: 20150512
  3. PACLITAXEL. [Suspect]
     Active Substance: PACLITAXEL
     Indication: BREAST CANCER
     Dosage: AMOUNT OF 1 ONCE ADMINISTRATION: 65-90MG/M^2?3 WEEKS ADMINISTRATION FOLLOWED BY 1 WEEK REST
     Route: 041
     Dates: start: 20160105
  4. BEVACIZUMAB [Suspect]
     Active Substance: BEVACIZUMAB
     Indication: BREAST CANCER
     Route: 041
     Dates: start: 20141202, end: 20151208

REACTIONS (1)
  - Altered state of consciousness [Not Recovered/Not Resolved]

NARRATIVE: CASE EVENT DATE: 20160919
